FAERS Safety Report 4607950-1 (Version None)
Quarter: 2005Q2

REPORT INFORMATION
  Report Type: 
  Country: None (occurrence: None)
  Receive Date: 20050228
  Receipt Date: 20041214
  Transmission Date: 20051028
  Serious: No
  Sender: FDA-Public Use
  Company Number: FABR-10916

PATIENT
  Age: 37 Year
  Sex: Male
  Weight: 93 kg

DRUGS (6)
  1. FABRAZYME [Suspect]
     Indication: FABRY'S DISEASE
     Dosage: 90 MG Q2WKS IV
     Route: 042
     Dates: start: 20030729
  2. OXYCONTIN [Concomitant]
  3. PROZAC [Concomitant]
  4. TOPAMAX [Concomitant]
  5. ZYPREXA [Concomitant]
  6. VITAMIN B-12 [Concomitant]

REACTIONS (1)
  - INFUSION SITE REACTION [None]
